FAERS Safety Report 16768911 (Version 1)
Quarter: 2019Q3

REPORT INFORMATION
  Report Type: Spontaneous
  Country: US (occurrence: US)
  Receive Date: 20190903
  Receipt Date: 20190903
  Transmission Date: 20191005
  Serious: Yes (Hospitalization)
  Sender: FDA-Public Use
  Company Number: US-SA-2019SA240681

PATIENT
  Sex: Female

DRUGS (25)
  1. TOPIRAMATE. [Concomitant]
     Active Substance: TOPIRAMATE
  2. TYSABRI [Concomitant]
     Active Substance: NATALIZUMAB
  3. DOXYCYCLINE HYCLATE. [Concomitant]
     Active Substance: DOXYCYCLINE HYCLATE
  4. CELEBREX [Concomitant]
     Active Substance: CELECOXIB
  5. POTASSIUM CHLORIDE. [Concomitant]
     Active Substance: POTASSIUM CHLORIDE
  6. HYDROMORPHONE HCL [Concomitant]
     Active Substance: HYDROMORPHONE HYDROCHLORIDE
  7. AUBAGIO [Suspect]
     Active Substance: TERIFLUNOMIDE
     Indication: PRODUCT USED FOR UNKNOWN INDICATION
     Dosage: 7 MG, QOD
     Route: 048
  8. CLEOCIN [CLINDAMYCIN PHOSPHATE] [Concomitant]
  9. COMBIVENT RESPIMAT [Concomitant]
     Active Substance: ALBUTEROL SULFATE\IPRATROPIUM BROMIDE
  10. ROPINIROLE HCL [Concomitant]
     Active Substance: ROPINIROLE HYDROCHLORIDE
  11. VENTOLIN HFA [Concomitant]
     Active Substance: ALBUTEROL SULFATE
  12. SERTRALINE HCL [Concomitant]
     Active Substance: SERTRALINE HYDROCHLORIDE
  13. DEXILANT [Concomitant]
     Active Substance: DEXLANSOPRAZOLE
  14. ALENDRONATE SODIUM. [Concomitant]
     Active Substance: ALENDRONATE SODIUM
  15. LEVOCETIRIZINE DIHYDROCHLORIDE. [Concomitant]
     Active Substance: LEVOCETIRIZINE DIHYDROCHLORIDE
  16. FLUTICASONE PROPIONATE. [Concomitant]
     Active Substance: FLUTICASONE PROPIONATE
  17. ALPRAZOLAM. [Concomitant]
     Active Substance: ALPRAZOLAM
  18. FENTANYL. [Concomitant]
     Active Substance: FENTANYL
  19. NUVIGIL [Concomitant]
     Active Substance: ARMODAFINIL
  20. RIZATRIPTAN BENZOATE [ZOLMITRIPTAN] [Concomitant]
  21. GABAPENTIN. [Concomitant]
     Active Substance: GABAPENTIN
  22. DIOVAN [Concomitant]
     Active Substance: VALSARTAN
  23. LIDOCAINE;PRILOCAINE [Concomitant]
  24. AMITIZA [Concomitant]
     Active Substance: LUBIPROSTONE
  25. OXYCODONE HYDROCHLORIDE. [Concomitant]
     Active Substance: OXYCODONE HYDROCHLORIDE

REACTIONS (2)
  - Hospitalisation [Recovered/Resolved]
  - Product use issue [Unknown]
